FAERS Safety Report 9106573 (Version 4)
Quarter: 2013Q2

REPORT INFORMATION
  Report Type: Report from Study
  Country: CA (occurrence: CA)
  Receive Date: 20130221
  Receipt Date: 20130517
  Transmission Date: 20140414
  Serious: Yes (Hospitalization, Other)
  Sender: FDA-Public Use
  Company Number: PHHY2011CA14706

PATIENT
  Sex: Female

DRUGS (4)
  1. ACLASTA [Suspect]
     Indication: OSTEOPOROSIS
     Dosage: UNK
     Route: 042
     Dates: start: 20090217
  2. ACLASTA [Suspect]
     Dosage: UNK
     Route: 042
     Dates: start: 20100303
  3. ACLASTA [Suspect]
     Dosage: UNK
     Route: 042
     Dates: start: 20110411
  4. ACLASTA [Suspect]
     Dosage: UNK
     Route: 042
     Dates: start: 20120411

REACTIONS (7)
  - Post procedural complication [Unknown]
  - Abdominal hernia [Unknown]
  - Gastric ulcer [Unknown]
  - Renal failure [Unknown]
  - Weight decreased [Unknown]
  - Calcinosis [Unknown]
  - Malaise [Unknown]
